FAERS Safety Report 13399613 (Version 3)
Quarter: 2017Q3

REPORT INFORMATION
  Report Type: Spontaneous
  Country: US (occurrence: US)
  Receive Date: 20170404
  Receipt Date: 20170823
  Transmission Date: 20171127
  Serious: No
  Sender: FDA-Public Use
  Company Number: US-THE MEDICINES COMPANY-US-MDCO-17-00134

PATIENT
  Age: 48 Year
  Sex: Female
  Weight: 70.3 kg

DRUGS (3)
  1. ORBACTIV [Suspect]
     Active Substance: ORITAVANCIN
     Indication: SKIN BACTERIAL INFECTION
     Route: 041
     Dates: start: 20170320, end: 20170320
  2. ORBACTIV [Suspect]
     Active Substance: ORITAVANCIN
     Indication: MYOSITIS
  3. DAPTOMYCIN. [Concomitant]
     Active Substance: DAPTOMYCIN
     Indication: PRODUCT USED FOR UNKNOWN INDICATION
     Dosage: NOT REPORTED

REACTIONS (8)
  - Red man syndrome [Recovered/Resolved]
  - Urticaria [Recovered/Resolved]
  - Erythema [Recovered/Resolved]
  - Pruritus [Recovered/Resolved]
  - Off label use [Recovered/Resolved]
  - Hypersensitivity [Recovered/Resolved]
  - Nausea [Recovered/Resolved]
  - Vomiting [Recovered/Resolved]

NARRATIVE: CASE EVENT DATE: 20170320
